FAERS Safety Report 9396311 (Version 1)
Quarter: 2013Q3

REPORT INFORMATION
  Report Type: Spontaneous
  Country: US (occurrence: None)
  Receive Date: 20130708
  Receipt Date: 20130708
  Transmission Date: 20140515
  Serious: Yes (Hospitalization)
  Sender: FDA-Public Use
  Company Number: 1778819

PATIENT
  Age: 32 Year
  Sex: Male

DRUGS (5)
  1. VANCOMYCIN HYDROCHLORIDE [Suspect]
     Indication: MENINGITIS STAPHYLOCOCCAL
     Dosage: (NOT OTHERWISE SPECIFIED)
     Route: 042
  2. PIOGLITAZONE [Concomitant]
  3. MONTELUKAST [Concomitant]
  4. BUDESONIDE W/FORMOTEROL FUMARATE [Concomitant]
  5. ROSUVASTATIN [Concomitant]

REACTIONS (1)
  - Meningitis eosinophilic [None]
